FAERS Safety Report 8090711-1 (Version None)
Quarter: 2012Q1

REPORT INFORMATION
  Report Type: 
  Country: None (occurrence: None)
  Receive Date: 20120130
  Receipt Date: 20120126
  Transmission Date: 20120608
  Serious: Yes (Death)
  Sender: FDA-Public Use
  Company Number: US-MERCK-1010USA02926B1

PATIENT
  Age: 0 Day

DRUGS (3)
  1. TRUVADA [Suspect]
     Route: 064
  2. KALETRA [Suspect]
     Route: 064
  3. ISENTRESS [Suspect]
     Route: 064

REACTIONS (1)
  - FOETAL DISORDER [None]
